FAERS Safety Report 6409421-9 (Version None)
Quarter: 2009Q4

REPORT INFORMATION
  Report Type: 
  Country: None (occurrence: None)
  Receive Date: 20091019
  Receipt Date: 20091019
  Transmission Date: 20100525
  Serious: Yes (Life-Threatening, Hospitalization)
  Sender: FDA-Public Use
  Company Number: None

PATIENT
  Sex: Female
  Weight: 78.9259 kg

DRUGS (1)
  1. OCELLA OCELLA 3-0.03MG TABS -DROSPIRENON [Suspect]
     Indication: ORAL CONTRACEPTION
     Dosage: 1 TABLET ONCE DAILY PO
     Route: 048
     Dates: start: 20090701, end: 20091013

REACTIONS (4)
  - HYPOXIA [None]
  - OEDEMA PERIPHERAL [None]
  - PULMONARY ARTERY THROMBOSIS [None]
  - PULMONARY EMBOLISM [None]
